FAERS Safety Report 9506520 (Version 4)
Quarter: 2013Q4

REPORT INFORMATION
  Report Type: Report from Study
  Country: AU (occurrence: AU)
  Receive Date: 20130906
  Receipt Date: 20131001
  Transmission Date: 20140711
  Serious: Yes (Other)
  Sender: FDA-Public Use
  Company Number: PHHY2013AU097894

PATIENT
  Age: 42 Year
  Sex: Male
  Weight: 66 kg

DRUGS (3)
  1. CLOZARIL [Suspect]
     Indication: SCHIZOPHRENIA
     Dosage: 375 MG, NIGHT
     Route: 048
  2. INDERAL [Concomitant]
     Dosage: 20 MG, MORNING
     Route: 048
  3. DIAZEPAM [Concomitant]
     Indication: ANXIETY

REACTIONS (9)
  - Aortic valve sclerosis [Unknown]
  - Myocardial calcification [Unknown]
  - Mitral valve sclerosis [Unknown]
  - Mitral valve calcification [Unknown]
  - Cardiomyopathy [Unknown]
  - Ejection fraction decreased [Unknown]
  - Ventricular hypokinesia [Unknown]
  - Left ventricular dysfunction [Unknown]
  - Neutrophilia [Unknown]
